FAERS Safety Report 11778157 (Version 1)
Quarter: 2015Q4

REPORT INFORMATION
  Report Type: Report from Study
  Country: BR (occurrence: BR)
  Receive Date: 20151125
  Receipt Date: 20151125
  Transmission Date: 20160304
  Serious: Yes (Other)
  Sender: FDA-Public Use
  Company Number: BR-BRISTOL-MYERS SQUIBB COMPANY-BMS-2015-078872

PATIENT
  Age: 54 Year
  Sex: Female

DRUGS (2)
  1. ABATACEPT [Suspect]
     Active Substance: ABATACEPT
     Indication: RHEUMATOID ARTHRITIS
     Dosage: 2 VIALS, MONTHLY
     Route: 042
     Dates: start: 2014
  2. LEFLUNOMIDE. [Concomitant]
     Active Substance: LEFLUNOMIDE
     Indication: PRODUCT USED FOR UNKNOWN INDICATION
     Dosage: UNK
     Route: 065

REACTIONS (6)
  - Head discomfort [Unknown]
  - Muscle rigidity [Unknown]
  - Arthralgia [Unknown]
  - Amnesia [Unknown]
  - Hip arthroplasty [Unknown]
  - Pain [Unknown]

NARRATIVE: CASE EVENT DATE: 20150603
